FAERS Safety Report 7557465-6 (Version None)
Quarter: 2011Q2

REPORT INFORMATION
  Report Type: 
  Country: None (occurrence: None)
  Receive Date: 20110620
  Receipt Date: 20110614
  Transmission Date: 20111010
  Serious: Yes (Hospitalization, Other)
  Sender: FDA-Public Use
  Company Number: FR-PFIZER INC-2011129787

PATIENT
  Age: 69 Year
  Sex: Female

DRUGS (11)
  1. HUMALOG [Concomitant]
     Dosage: UNK
     Dates: start: 20110501
  2. ASPIRIN [Suspect]
     Dosage: 75 MG, 1X/DAY
     Route: 048
     Dates: end: 20110512
  3. NEURONTIN [Suspect]
     Dosage: 1200 TO 1600 MG DAILY
     Route: 048
     Dates: end: 20110512
  4. MOTILIUM [Concomitant]
     Dosage: UNK
  5. LASIX [Concomitant]
     Dosage: 41 MG PER DAY
     Route: 048
  6. NEXIUM [Suspect]
     Dosage: 20 MG PER DAY
     Route: 048
     Dates: end: 20110512
  7. NOVOMIX [Concomitant]
     Dosage: UNK
     Dates: end: 20110501
  8. NOVORAPID [Concomitant]
     Dosage: UNK
     Dates: end: 20110501
  9. ATORVASTATIN CALCIUM [Suspect]
     Dosage: 40 MG A DAY
     Route: 048
     Dates: end: 20110512
  10. NICARDIPINE HCL [Suspect]
     Dosage: 50 MG, 2X/DAY
     Route: 048
     Dates: end: 20110512
  11. ACUPAN [Concomitant]
     Dosage: 20 MG, 4X/DAY
     Route: 048

REACTIONS (5)
  - DEPRESSED LEVEL OF CONSCIOUSNESS [None]
  - RENAL FAILURE [None]
  - COMA [None]
  - DEHYDRATION [None]
  - OVERDOSE [None]
